FAERS Safety Report 10392146 (Version 1)
Quarter: 2014Q3

REPORT INFORMATION
  Report Type: Spontaneous
  Country: GB (occurrence: GB)
  Receive Date: 20140819
  Receipt Date: 20140819
  Transmission Date: 20150326
  Serious: Yes (Disabling, Other)
  Sender: FDA-Public Use
  Company Number: GB-ROCHE-1449862

PATIENT
  Age: 42 Year
  Sex: Female
  Weight: 97.52 kg

DRUGS (3)
  1. NAPROXEN. [Suspect]
     Active Substance: NAPROXEN
     Indication: COSTOCHONDRITIS
     Route: 048
     Dates: start: 20140704, end: 20140723
  2. RENNIE (UNITED KINGDOM) [Concomitant]
     Route: 065
  3. KAPAKE [Concomitant]
     Active Substance: ACETAMINOPHEN\CODEINE PHOSPHATE
     Indication: PAIN
     Dosage: 15MG/500MG
     Route: 065
     Dates: start: 20140704

REACTIONS (6)
  - Haematuria [Recovering/Resolving]
  - Diarrhoea [Recovering/Resolving]
  - Vomiting [Recovering/Resolving]
  - Renal disorder [Recovering/Resolving]
  - Abdominal pain upper [Unknown]
  - Haematemesis [Recovering/Resolving]

NARRATIVE: CASE EVENT DATE: 20140722
